FAERS Safety Report 10661280 (Version 1)
Quarter: 2014Q4

REPORT INFORMATION
  Report Type: Spontaneous
  Country: US (occurrence: US)
  Receive Date: 20141218
  Receipt Date: 20141218
  Transmission Date: 20150529
  Serious: No
  Sender: FDA-Public Use
  Company Number: US-BIOGENIDEC-2014BI133785

PATIENT
  Age: 63 Year
  Sex: Female

DRUGS (16)
  1. CARDURA [Concomitant]
     Active Substance: DOXAZOSIN MESYLATE
  2. MULTIVITAMINS [Concomitant]
     Active Substance: VITAMINS
  3. PROZAC [Concomitant]
     Active Substance: FLUOXETINE HYDROCHLORIDE
  4. POTASSIUM CHLORIDE CR [Concomitant]
     Active Substance: POTASSIUM CHLORIDE
  5. XANAX [Concomitant]
     Active Substance: ALPRAZOLAM
  6. NORVASC [Concomitant]
     Active Substance: AMLODIPINE BESYLATE
  7. AVONEX [Suspect]
     Active Substance: INTERFERON BETA-1A
     Indication: MULTIPLE SCLEROSIS
     Route: 030
  8. PRILOSEC [Concomitant]
     Active Substance: OMEPRAZOLE MAGNESIUM
  9. AMBIEN [Concomitant]
     Active Substance: ZOLPIDEM TARTRATE
  10. DOXAZOSIN MESYLATE. [Concomitant]
     Active Substance: DOXAZOSIN MESYLATE
  11. FOLIC ACID. [Concomitant]
     Active Substance: FOLIC ACID
  12. COENZYME Q10 [Concomitant]
     Active Substance: UBIDECARENONE
  13. ASPIRIN ADULT LOW STRENGTH [Concomitant]
     Active Substance: ASPIRIN
  14. TRAMADOL HCL (BIPHASIC) [Concomitant]
  15. SYNTHROID [Concomitant]
     Active Substance: LEVOTHYROXINE SODIUM
  16. VITAMIN D [Concomitant]
     Active Substance: CHOLECALCIFEROL

REACTIONS (3)
  - Pyrexia [Unknown]
  - Injection site bruising [Unknown]
  - Chills [Unknown]
